FAERS Safety Report 12009607 (Version 1)
Quarter: 2016Q1

REPORT INFORMATION
  Report Type: Spontaneous
  Country: US (occurrence: None)
  Receive Date: 20160204
  Receipt Date: 20160204
  Transmission Date: 20160526
  Serious: No
  Sender: FDA-Public Use
  Company Number: None

PATIENT
  Sex: Male
  Weight: 111.13 kg

DRUGS (1)
  1. SILDENAFIL 20 MG GREENSTONE [Suspect]
     Active Substance: SILDENAFIL
     Indication: ERECTILE DYSFUNCTION
     Dosage: 20 MG, 5 DAILY, PO
     Route: 048
     Dates: start: 2014, end: 2015

REACTIONS (2)
  - Product substitution issue [None]
  - Drug ineffective [None]
